FAERS Safety Report 10950936 (Version 1)
Quarter: 2015Q1

REPORT INFORMATION
  Report Type: Spontaneous
  Country: FR (occurrence: FR)
  Receive Date: 20150324
  Receipt Date: 20150324
  Transmission Date: 20150721
  Serious: Yes (Hospitalization, Other)
  Sender: FDA-Public Use
  Company Number: FR-ASTRAZENECA-2015SE25463

PATIENT
  Age: 689 Month
  Sex: Male

DRUGS (9)
  1. LANTUS [Concomitant]
     Active Substance: INSULIN GLARGINE
  2. FLECAINE SR [Concomitant]
     Active Substance: FLECAINIDE ACETATE
  3. STAGID [Concomitant]
     Active Substance: METFORMIN PAMOATE
  4. TAHOR [Suspect]
     Active Substance: ATORVASTATIN CALCIUM
     Route: 048
     Dates: start: 201402, end: 201405
  5. REMICADE [Suspect]
     Active Substance: INFLIXIMAB
     Indication: CROHN^S DISEASE
     Dosage: 5 MG/KG PER COURSE
     Route: 065
     Dates: start: 20140214, end: 20140327
  6. NOVORAPID [Concomitant]
     Active Substance: INSULIN ASPART
  7. TEMESTA [Concomitant]
     Active Substance: LORAZEPAM
  8. SERC [Concomitant]
     Active Substance: BETAHISTINE HYDROCHLORIDE
  9. INEXIUM [Suspect]
     Active Substance: ESOMEPRAZOLE
     Route: 048
     Dates: end: 201405

REACTIONS (1)
  - Autoimmune hepatitis [Recovering/Resolving]

NARRATIVE: CASE EVENT DATE: 201405
